FAERS Safety Report 6037732-8 (Version None)
Quarter: 2009Q1

REPORT INFORMATION
  Report Type: 
  Country: None (occurrence: None)
  Receive Date: 20090113
  Receipt Date: 20090105
  Transmission Date: 20090719
  Serious: Yes (Hospitalization)
  Sender: FDA-Public Use
  Company Number: 232909K08USA

PATIENT
  Age: 59 Year
  Sex: Female
  Weight: 63 kg

DRUGS (15)
  1. REBIF [Suspect]
     Indication: MULTIPLE SCLEROSIS
     Dosage: 44 MCG, 3 IN 1 WEEKS, SUBCUTANEOUS
     Route: 058
     Dates: start: 20041210
  2. DIOVAN [Concomitant]
  3. METOPROLOL TARTRATE [Concomitant]
  4. FENOFIBRATE [Concomitant]
  5. ESTRADIOL [Concomitant]
  6. AMITRIPTYLINE HYDROCHLORIDE [Concomitant]
  7. METHYLPHENIDATE HCL [Concomitant]
  8. KEPPRA [Concomitant]
  9. BUTORPHANOL (BUTORPHANOL) [Concomitant]
  10. MIRAPEX [Concomitant]
  11. ZOLPIDEM TARTRATE [Concomitant]
  12. GABAPENTIN [Concomitant]
  13. PROPOXYPHENE (DEXTROPROPOXYPHENE) [Concomitant]
  14. BELLADONNA PHENOBARBITAL TABS (BELLADENAL) [Concomitant]
  15. PROMETHAZINE [Concomitant]

REACTIONS (6)
  - CHOLECYSTITIS INFECTIVE [None]
  - KIDNEY ENLARGEMENT [None]
  - POST PROCEDURAL INFECTION [None]
  - PURULENCE [None]
  - RENAL ATROPHY [None]
  - RENAL FAILURE [None]
